FAERS Safety Report 5968254-8 (Version None)
Quarter: 2008Q4

REPORT INFORMATION
  Report Type: 
  Country: None (occurrence: None)
  Receive Date: 20081122
  Receipt Date: 20081122
  Transmission Date: 20090506
  Serious: Yes (Hospitalization)
  Sender: FDA-Public Use
  Company Number: None

PATIENT
  Sex: Male
  Weight: 65.5 kg

DRUGS (1)
  1. CISPLATIN [Suspect]
     Dosage: 187 MG
     Dates: end: 20081029

REACTIONS (8)
  - CANDIDIASIS [None]
  - FEEDING TUBE COMPLICATION [None]
  - HAEMOGLOBIN DECREASED [None]
  - INFECTION [None]
  - LARYNGEAL INFLAMMATION [None]
  - NEUTROPENIA [None]
  - STOMATITIS [None]
  - WHITE BLOOD CELL COUNT DECREASED [None]
